FAERS Safety Report 4685890-X (Version None)
Quarter: 2005Q2

REPORT INFORMATION
  Report Type: 
  Country: None (occurrence: None)
  Receive Date: 20050607
  Receipt Date: 20050607
  Transmission Date: 20051028
  Serious: No
  Sender: FDA-Public Use
  Company Number: None

PATIENT
  Age: 58 Year
  Sex: Male

DRUGS (1)
  1. CARBAMAZEPINE [Suspect]
     Indication: CONVULSION
     Dosage: 1 AND 1/2 TABS AM AND NOON AND 1 TAB AT BEDTIME
     Dates: start: 20050504, end: 20050606

REACTIONS (4)
  - AURA [None]
  - CONVULSION [None]
  - DISTURBANCE IN ATTENTION [None]
  - PHARMACEUTICAL PRODUCT COMPLAINT [None]
